FAERS Safety Report 16538535 (Version 1)
Quarter: 2019Q3

REPORT INFORMATION
  Report Type: Spontaneous
  Country: IT (occurrence: IT)
  Receive Date: 20190708
  Receipt Date: 20190708
  Transmission Date: 20191004
  Serious: Yes (Hospitalization)
  Sender: FDA-Public Use
  Company Number: IT-ROCHE-2348491

PATIENT
  Age: 75 Year
  Sex: Male
  Weight: 65 kg

DRUGS (10)
  1. RANITIDINE. [Concomitant]
     Active Substance: RANITIDINE
     Route: 048
  2. MABTHERA [Suspect]
     Active Substance: RITUXIMAB
     Indication: DISSEMINATED LARGE CELL LYMPHOMA
     Dosage: MOST RECENT DOSE: 22/DEC/2017
     Route: 042
     Dates: start: 20150721
  3. TOPSTER [Concomitant]
     Route: 054
  4. DIBASE [Concomitant]
     Active Substance: CHOLECALCIFEROL
     Route: 048
  5. OMNIC [Concomitant]
     Active Substance: TAMSULOSIN HYDROCHLORIDE
     Route: 048
  6. TORVAST [Concomitant]
     Active Substance: ATORVASTATIN
     Route: 048
  7. NORVASC [Concomitant]
     Active Substance: AMLODIPINE BESYLATE
     Route: 048
  8. ENAPREN [Concomitant]
     Active Substance: ENALAPRIL MALEATE
     Route: 048
  9. CARDIRENE [Concomitant]
     Active Substance: ASPIRIN DL-LYSINE
     Route: 048
  10. TENORMIN [Concomitant]
     Active Substance: ATENOLOL
     Route: 048

REACTIONS (1)
  - Progressive multifocal leukoencephalopathy [Not Recovered/Not Resolved]

NARRATIVE: CASE EVENT DATE: 20180324
